FAERS Safety Report 24722708 (Version 1)
Quarter: 2024Q4

REPORT INFORMATION
  Report Type: Spontaneous
  Country: US (occurrence: None)
  Receive Date: 20241211
  Receipt Date: 20241211
  Transmission Date: 20250114
  Serious: Yes (Life-Threatening)
  Sender: Public
  Company Number: None

PATIENT
  Age: 64 Year
  Sex: Male
  Weight: 113.4 kg

DRUGS (12)
  1. MOUNJARO [Suspect]
     Active Substance: TIRZEPATIDE
     Indication: Weight decreased
     Dosage: FREQUENCY : WEEKLY;?
     Route: 042
     Dates: start: 20240910, end: 20240910
  2. METFORMIN [Concomitant]
     Active Substance: METFORMIN HYDROCHLORIDE
  3. NOVOLOG [Concomitant]
     Active Substance: INSULIN ASPART
  4. INSULIN LANTOSE [Concomitant]
  5. ENABRIL [Concomitant]
  6. ALTACE [Concomitant]
     Active Substance: RAMIPRIL
  7. AMOLODIPINE [Concomitant]
  8. ROSUVASTATIN [Concomitant]
     Active Substance: ROSUVASTATIN
  9. EZETIA [Concomitant]
  10. FISH OIL [Concomitant]
     Active Substance: FISH OIL
  11. DEVICE [Concomitant]
     Active Substance: DEVICE
  12. ENABULIZER [Concomitant]

REACTIONS (3)
  - Anaphylactic shock [None]
  - Septic shock [None]
  - Product complaint [None]

NARRATIVE: CASE EVENT DATE: 20240910
